FAERS Safety Report 12942011 (Version 4)
Quarter: 2016Q4

REPORT INFORMATION
  Report Type: Spontaneous
  Country: JP (occurrence: JP)
  Receive Date: 20161115
  Receipt Date: 20161217
  Transmission Date: 20170207
  Serious: Yes (Other)
  Sender: FDA-Public Use
  Company Number: JP-009507513-1611JPN006429

PATIENT
  Age: 88 Year
  Sex: Female

DRUGS (4)
  1. VOGLIBOSE [Suspect]
     Active Substance: VOGLIBOSE
     Dosage: 0.9MG DAILY
     Route: 048
  2. SITAGLIPTIN PHOSPHATE [Suspect]
     Active Substance: SITAGLIPTIN PHOSPHATE
     Dosage: 50MG DAILY, DIVIDED DOSE FREQUENCY UNKNOWN
     Route: 048
  3. GLIMEPIRIDE. [Suspect]
     Active Substance: GLIMEPIRIDE
     Dosage: 1 MG, UNK
     Route: 048
  4. LEVOFLOXACIN. [Suspect]
     Active Substance: LEVOFLOXACIN
     Indication: URINARY TRACT INFECTION
     Dosage: 500MG DAILY, DIVIDED DOSE FREQUENCY UNKNOWN
     Route: 065

REACTIONS (2)
  - Altered state of consciousness [Unknown]
  - Hypoglycaemia [Recovering/Resolving]
